FAERS Safety Report 4827330-3 (Version None)
Quarter: 2005Q4

REPORT INFORMATION
  Report Type: 
  Country: None (occurrence: None)
  Receive Date: 20051114
  Receipt Date: 20050803
  Transmission Date: 20060501
  Serious: Yes (Hospitalization, Other)
  Sender: FDA-Public Use
  Company Number: US-MERCK-0508USA01157

PATIENT
  Age: 58 Year
  Sex: Male
  Weight: 69 kg

DRUGS (8)
  1. VIOXX [Suspect]
     Indication: CONTUSION
     Route: 048
     Dates: start: 20030828, end: 20030101
  2. VIOXX [Suspect]
     Route: 048
     Dates: start: 20030828, end: 20030101
  3. VIOXX [Suspect]
     Route: 048
     Dates: start: 20030828, end: 20030101
  4. VIOXX [Suspect]
     Indication: PAIN
     Route: 048
     Dates: start: 20030828, end: 20030101
  5. VIOXX [Suspect]
     Route: 048
     Dates: start: 20030828, end: 20030101
  6. VIOXX [Suspect]
     Route: 048
     Dates: start: 20030828, end: 20030101
  7. BENADRYL [Concomitant]
     Indication: HYPERSENSITIVITY
     Route: 065
  8. ROLAIDS [Concomitant]
     Route: 065

REACTIONS (10)
  - ANAEMIA [None]
  - ANXIETY [None]
  - CARDIAC TAMPONADE [None]
  - CONVULSION [None]
  - CORONARY ARTERY DISEASE [None]
  - DYSPEPSIA [None]
  - MYOCARDIAL INFARCTION [None]
  - OVERDOSE [None]
  - POST PROCEDURAL HAEMORRHAGE [None]
  - VENTRICULAR FIBRILLATION [None]
